FAERS Safety Report 24465774 (Version 1)
Quarter: 2024Q4

REPORT INFORMATION
  Report Type: Spontaneous
  Country: US (occurrence: US)
  Receive Date: 20241018
  Receipt Date: 20241018
  Transmission Date: 20250115
  Serious: No
  Sender: ROCHE
  Company Number: US-ROCHE-3530147

PATIENT

DRUGS (1)
  1. XOLAIR [Suspect]
     Active Substance: OMALIZUMAB
     Indication: Product used for unknown indication
     Route: 065

REACTIONS (5)
  - Antinuclear antibody positive [Unknown]
  - Hypothyroidism [Unknown]
  - Arthralgia [Unknown]
  - Brain fog [Unknown]
  - Gastrointestinal hypomotility [Unknown]
